FAERS Safety Report 24266717 (Version 1)
Quarter: 2024Q3

REPORT INFORMATION
  Report Type: Spontaneous
  Country: US (occurrence: None)
  Receive Date: 20240830
  Receipt Date: 20240830
  Transmission Date: 20241017
  Serious: No
  Sender: AXSOME THERAPEUTICS
  Company Number: US-Axsome Therapeutics, Inc.-AXS202406-000902

PATIENT
  Age: 63 Year
  Sex: Male

DRUGS (1)
  1. AUVELITY [Suspect]
     Active Substance: BUPROPION HYDROCHLORIDE\DEXTROMETHORPHAN HYDROBROMIDE
     Indication: Product used for unknown indication
     Dosage: 45-105 MG
     Route: 048
     Dates: end: 20240629

REACTIONS (5)
  - Tinnitus [Recovered/Resolved]
  - Loss of personal independence in daily activities [Recovered/Resolved]
  - Chromaturia [Recovered/Resolved]
  - Somnolence [Recovered/Resolved]
  - Therapeutic product effect variable [Unknown]
